APPROVED DRUG PRODUCT: OPZELURA
Active Ingredient: RUXOLITINIB PHOSPHATE
Strength: EQ 1.5% BASE
Dosage Form/Route: CREAM;TOPICAL
Application: N215309 | Product #001
Applicant: INCYTE CORP
Approved: Sep 21, 2021 | RLD: Yes | RS: Yes | Type: RX

PATENTS:
Patent 8822481 | Expires: Jun 12, 2028
Patent 9079912 | Expires: Dec 12, 2026
Patent 10610530 | Expires: Jun 12, 2028
Patent 10869870 | Expires: May 20, 2031
Patent 9974790 | Expires: Dec 12, 2026
Patent 12233067 | Expires: Jul 28, 2040
Patent 11219624 | Expires: May 20, 2031
Patent 9079912 | Expires: Dec 12, 2026
Patent 9974790 | Expires: Dec 12, 2026
Patent 10610530 | Expires: Jun 12, 2028
Patent 10639310 | Expires: Dec 12, 2026
Patent 10869870 | Expires: May 20, 2031
Patent 11510923 | Expires: Sep 4, 2040
Patent 11602536 | Expires: May 5, 2041
Patent 11590138 | Expires: Jun 10, 2040
Patent 11590137 | Expires: Sep 4, 2040
Patent 11590136 | Expires: May 20, 2031
Patent 11590136 | Expires: May 20, 2031
Patent 8822481 | Expires: Jun 12, 2028
Patent 8722693 | Expires: Jun 12, 2028
Patent 7598257 | Expires: Dec 24, 2027
Patent 8415362 | Expires: Dec 24, 2027
Patent 10758543 | Expires: May 20, 2031
Patent 12226419 | Expires: May 20, 2031
Patent 11571425 | Expires: May 20, 2031
Patent 11219624*PED | Expires: Nov 20, 2031
Patent 7598257*PED | Expires: Jun 24, 2028
Patent 8415362*PED | Expires: Jun 24, 2028
Patent 8722693*PED | Expires: Dec 12, 2028
Patent 10758543*PED | Expires: Nov 20, 2031
Patent 8822481*PED | Expires: Dec 12, 2028
Patent 9079912*PED | Expires: Jun 12, 2027
Patent 9974790*PED | Expires: Jun 12, 2027
Patent 10610530*PED | Expires: Dec 12, 2028
Patent 10639310*PED | Expires: Jun 12, 2027
Patent 10869870*PED | Expires: Nov 20, 2031

EXCLUSIVITY:
Code: I-896 | Date: Jul 18, 2025
Code: NPP | Date: Sep 18, 2028
Code: PED | Date: Jan 18, 2026